FAERS Safety Report 23032045 (Version 1)
Quarter: 2023Q4

REPORT INFORMATION
  Report Type: Spontaneous
  Country: FR (occurrence: FR)
  Receive Date: 20231005
  Receipt Date: 20231005
  Transmission Date: 20240110
  Serious: Yes (Life-Threatening)
  Sender: FDA-Public Use
  Company Number: None

PATIENT
  Age: 79 Year
  Sex: Male
  Weight: 78 kg

DRUGS (3)
  1. EPLERENONE [Interacting]
     Active Substance: EPLERENONE
     Indication: Hypertension
     Dosage: STRENGTH: 25MG, 1 PER DAY
     Dates: start: 20230509, end: 20230809
  2. CANDESARTAN [Interacting]
     Active Substance: CANDESARTAN
     Indication: Hypertension
     Dosage: STRENGTH: 8MG, SCORED TABLET, 1 PER DAY
     Dates: start: 20230509, end: 20230809
  3. ALDACTONE [Interacting]
     Active Substance: SPIRONOLACTONE
     Indication: Hypertension
     Dosage: STRENGTH: 25MG, 1 PER DAY
     Dates: start: 20230509, end: 20230809

REACTIONS (3)
  - Contraindicated product administered [Recovered/Resolved]
  - Acute kidney injury [Recovered/Resolved]
  - Hyperkalaemia [Recovered/Resolved]

NARRATIVE: CASE EVENT DATE: 20230509
